FAERS Safety Report 17733342 (Version 1)
Quarter: 2020Q2

REPORT INFORMATION
  Report Type: Spontaneous
  Country: US (occurrence: US)
  Receive Date: 20200430
  Receipt Date: 20200430
  Transmission Date: 20200714
  Serious: Yes (Death)
  Sender: FDA-Public Use
  Company Number: None

PATIENT
  Sex: Female

DRUGS (11)
  1. ALPRAZOLAM. [Concomitant]
     Active Substance: ALPRAZOLAM
  2. METOCLOPRAM [Concomitant]
     Active Substance: METOCLOPRAMIDE
  3. MEKINIST [Suspect]
     Active Substance: TRAMETINIB DIMETHYL SULFOXIDE
     Indication: OVARIAN CANCER
     Route: 048
     Dates: start: 20200314
  4. FAMOTIDINE. [Concomitant]
     Active Substance: FAMOTIDINE
  5. LEVOTHYROXIN [Concomitant]
     Active Substance: LEVOTHYROXINE
  6. TRIAMCINOLONE [Concomitant]
     Active Substance: TRIAMCINOLONE
  7. NYSTATIN. [Concomitant]
     Active Substance: NYSTATIN
  8. METOPROLOL. [Concomitant]
     Active Substance: METOPROLOL
  9. OMPERAZOLE [Concomitant]
     Active Substance: OMEPRAZOLE
  10. POTASSIUM CHLORIDE. [Concomitant]
     Active Substance: POTASSIUM CHLORIDE
  11. SPIRONO/HCTZ [Concomitant]

REACTIONS (1)
  - Death [None]
